FAERS Safety Report 5899383-5 (Version None)
Quarter: 2008Q3

REPORT INFORMATION
  Report Type: 
  Country: None (occurrence: None)
  Receive Date: 20080924
  Receipt Date: 20080911
  Transmission Date: 20090109
  Serious: Yes (Other)
  Sender: FDA-Public Use
  Company Number: 8037007

PATIENT
  Sex: Female

DRUGS (2)
  1. XYZAL [Suspect]
     Indication: SEASONAL ALLERGY
     Dosage: 5 MG 1/D PO
     Route: 048
     Dates: start: 20080710
  2. VERAMYST [Concomitant]

REACTIONS (3)
  - LIVER FUNCTION TEST ABNORMAL [None]
  - LIVER INJURY [None]
  - UTERINE MASS [None]
